FAERS Safety Report 8955623 (Version 2)
Quarter: 2013Q3

REPORT INFORMATION
  Report Type: Report from Study
  Country: US (occurrence: US)
  Receive Date: 20121210
  Receipt Date: 20130715
  Transmission Date: 20140515
  Serious: Yes (Hospitalization)
  Sender: FDA-Public Use
  Company Number: US-BRISTOL-MYERS SQUIBB COMPANY-17110180

PATIENT
  Age: 75 Year
  Sex: Female

DRUGS (6)
  1. SAXAGLIPTIN [Suspect]
     Indication: TYPE 2 DIABETES MELLITUS
     Dates: start: 20111110, end: 20120917
  2. METFORMIN HCL [Suspect]
     Indication: TYPE 2 DIABETES MELLITUS
     Dosage: PRIOR TO RANDOMIZATION
  3. COUMADIN [Suspect]
     Indication: ATRIAL FIBRILLATION
  4. ASPIRIN [Suspect]
  5. DOBUTAMINE [Concomitant]
     Dates: start: 20121005
  6. AMIODARONE [Concomitant]
     Dosage: 15OCT12-26OCT12 250MG?27OCT2012-ONG 200MG
     Dates: start: 20121005

REACTIONS (4)
  - Gastrointestinal haemorrhage [Recovered/Resolved]
  - Anaemia [Recovered/Resolved]
  - Sepsis [Recovered/Resolved]
  - Hypotension [Recovered/Resolved]
